FAERS Safety Report 24411469 (Version 1)
Quarter: 2024Q4

REPORT INFORMATION
  Report Type: Spontaneous
  Country: US (occurrence: None)
  Receive Date: 20241007
  Receipt Date: 20241007
  Transmission Date: 20250115
  Serious: Yes (Hospitalization)
  Sender: Public
  Company Number: None

PATIENT
  Age: 20 Year
  Sex: Male
  Weight: 134 kg

DRUGS (1)
  1. KYMRIAH [Suspect]
     Active Substance: TISAGENLECLEUCEL
     Indication: B-cell type acute leukaemia
     Dates: start: 20240730

REACTIONS (4)
  - Cytokine release syndrome [None]
  - Seizure [None]
  - Vomiting [None]
  - Neurotoxicity [None]

NARRATIVE: CASE EVENT DATE: 20240819
